FAERS Safety Report 12213804 (Version 2)
Quarter: 2016Q2

REPORT INFORMATION
  Report Type: Spontaneous
  Country: RU (occurrence: RU)
  Receive Date: 20160328
  Receipt Date: 20160406
  Transmission Date: 20160815
  Serious: Yes (Death)
  Sender: FDA-Public Use
  Company Number: RU-SYMPLMED PHARMACEUTICALS-2016SYMPLMED000176

PATIENT

DRUGS (2)
  1. CAVINTON [Suspect]
     Active Substance: VINPOCETINE
     Indication: PRODUCT USED FOR UNKNOWN INDICATION
     Dosage: UNK, SINGLE
     Route: 048
     Dates: start: 20160315, end: 20160315
  2. PRESTARIUM A [Suspect]
     Active Substance: PERINDOPRIL ARGININE
     Indication: HYPERTENSION
     Dosage: 5 MG, SINGLE
     Route: 048
     Dates: start: 20160315, end: 20160315

REACTIONS (4)
  - Death [Fatal]
  - Drug interaction [Unknown]
  - Incorrect product formulation administered [Unknown]
  - Intentional product misuse [Unknown]

NARRATIVE: CASE EVENT DATE: 20160315
